FAERS Safety Report 5213276-8 (Version None)
Quarter: 2007Q1

REPORT INFORMATION
  Report Type: 
  Country: None (occurrence: None)
  Receive Date: 20070119
  Receipt Date: 20070109
  Transmission Date: 20070707
  Serious: Yes (Hospitalization)
  Sender: FDA-Public Use
  Company Number: US-JNJFOC-20070102233

PATIENT
  Age: 44 Year
  Sex: Male

DRUGS (5)
  1. PREZISTA [Suspect]
     Indication: HIV INFECTION
     Route: 048
  2. EFAVIRENZ [Concomitant]
  3. DIDANOSINE [Concomitant]
  4. TENOFOVIR [Concomitant]
  5. RITONAVIR [Concomitant]

REACTIONS (2)
  - IMMUNE RECONSTITUTION SYNDROME [None]
  - MENINGITIS ASEPTIC [None]
